FAERS Safety Report 9746094 (Version 2)
Quarter: 2013Q4

REPORT INFORMATION
  Report Type: Spontaneous
  Country: US (occurrence: US)
  Receive Date: 20131211
  Receipt Date: 20131211
  Transmission Date: 20140711
  Serious: No
  Sender: FDA-Public Use
  Company Number: US-GILEAD-2009-0024464

PATIENT
  Sex: Male

DRUGS (1)
  1. ATRIPLA [Suspect]
     Indication: HIV INFECTION

REACTIONS (5)
  - Hypoaesthesia oral [Recovered/Resolved]
  - Skin hypopigmentation [Recovered/Resolved]
  - Gastrooesophageal reflux disease [Recovered/Resolved]
  - Skin discolouration [Recovered/Resolved]
  - Oral fungal infection [Recovered/Resolved]
